FAERS Safety Report 5444242-5 (Version None)
Quarter: 2007Q3

REPORT INFORMATION
  Report Type: 
  Country: None (occurrence: None)
  Receive Date: 20070904
  Receipt Date: 20070904
  Transmission Date: 20080115
  Serious: Yes (Life-Threatening, Hospitalization)
  Sender: FDA-Public Use
  Company Number: None

PATIENT
  Age: 68 Year
  Sex: Female
  Weight: 111.1313 kg

DRUGS (1)
  1. MEGACE [Suspect]
     Indication: ENDOMETRIAL HYPERPLASIA
     Dosage: 40MG DAILY PO
     Route: 048
     Dates: start: 20061101, end: 20070210

REACTIONS (4)
  - DEEP VEIN THROMBOSIS [None]
  - NAUSEA [None]
  - PULMONARY EMBOLISM [None]
  - VOMITING [None]
